FAERS Safety Report 8740538 (Version 2)
Quarter: 2012Q4

REPORT INFORMATION
  Report Type: 
  Country: US (occurrence: US)
  Receive Date: 20120823
  Receipt Date: 20120917
  Transmission Date: 20130627
  Serious: Yes (Other)
  Sender: FDA-Public Use
  Company Number: US-MERCK-1208USA007052

PATIENT

DRUGS (6)
  1. HYZAAR [Suspect]
     Indication: HYPERTENSION
     Dosage: 100/25 mg, UID/QD
     Route: 048
     Dates: start: 2007
  2. HYDROCHLOROTHIAZIDE [Concomitant]
     Dosage: 25 mg, UNK
  3. AMLODIPINE BESYLATE [Concomitant]
     Dosage: 10 mg, UNK
  4. OMEGA-3 MARINE TRIGLYCERIDES [Concomitant]
     Dosage: 1000 mg, UNK
  5. METFORMIN HYDROCHLORIDE [Concomitant]
     Dosage: 500 mg, UNK
  6. ASPIRIN [Concomitant]
     Dosage: 81 mg, UNK

REACTIONS (1)
  - Angioedema [Recovered/Resolved]
